FAERS Safety Report 7503536-X (Version None)
Quarter: 2011Q2

REPORT INFORMATION
  Report Type: 
  Country: None (occurrence: None)
  Receive Date: 20110525
  Receipt Date: 20110517
  Transmission Date: 20111010
  Serious: Yes (Other)
  Sender: FDA-Public Use
  Company Number: IT-ROCHE-777667

PATIENT
  Sex: Male

DRUGS (4)
  1. OXALIPLATIN [Suspect]
     Dosage: FREQUENCY:CYCLIC
     Route: 065
     Dates: start: 20090615, end: 20090727
  2. XELODA [Suspect]
     Dosage: FREQUENCY :CYCLIC
     Route: 048
     Dates: start: 20090615, end: 20090727
  3. XELODA [Suspect]
     Dosage: FREQUENCY:CYCLIC
     Route: 048
     Dates: start: 20090728, end: 20091021
  4. OXALIPLATIN [Suspect]
     Dosage: FREQUENCY:CYCLIC
     Route: 065
     Dates: start: 20090728, end: 20091021

REACTIONS (5)
  - THROMBOCYTOPENIA [None]
  - BLOOD IRON INCREASED [None]
  - ANAEMIA [None]
  - ASTHENIA [None]
  - PARAESTHESIA [None]
